FAERS Safety Report 18440175 (Version 1)
Quarter: 2020Q4

REPORT INFORMATION
  Report Type: Spontaneous
  Country: US (occurrence: US)
  Receive Date: 20201029
  Receipt Date: 20201029
  Transmission Date: 20210114
  Serious: Yes (Hospitalization)
  Sender: FDA-Public Use
  Company Number: US-CIPLA LTD.-2020US07673

PATIENT

DRUGS (4)
  1. LISDEXAMFETAMINE [Suspect]
     Active Substance: LISDEXAMFETAMINE
     Indication: BINGE EATING
     Dosage: 40 MILLIGRAM, UNK
     Route: 065
  2. PHENTERMINE. [Suspect]
     Active Substance: PHENTERMINE
     Indication: BINGE EATING
     Dosage: 37.5 MILLIGRAM
     Route: 065
  3. LISDEXAMFETAMINE [Suspect]
     Active Substance: LISDEXAMFETAMINE
     Indication: DECREASED APPETITE
  4. PHENTERMINE. [Suspect]
     Active Substance: PHENTERMINE
     Indication: DECREASED APPETITE

REACTIONS (4)
  - Off label use [Unknown]
  - Product use in unapproved indication [Unknown]
  - Drug interaction [Unknown]
  - Stress cardiomyopathy [Recovered/Resolved]
